FAERS Safety Report 14333527 (Version 2)
Quarter: 2018Q1

REPORT INFORMATION
  Report Type: Report from Study
  Country: US (occurrence: US)
  Receive Date: 20171228
  Receipt Date: 20180104
  Transmission Date: 20180509
  Serious: Yes (Death, Hospitalization)
  Sender: FDA-Public Use
  Company Number: US-BAYER-2017-246207

PATIENT
  Age: 67 Year
  Sex: Male

DRUGS (15)
  1. DIGOXIN. [Concomitant]
     Active Substance: DIGOXIN
  2. DILAUDID [Concomitant]
     Active Substance: HYDROMORPHONE HYDROCHLORIDE
  3. LISINOPRIL. [Concomitant]
     Active Substance: LISINOPRIL
  4. SERTRALINE HYDROCHLORIDE. [Concomitant]
     Active Substance: SERTRALINE HYDROCHLORIDE
  5. CAPECITABINE. [Concomitant]
     Active Substance: CAPECITABINE
  6. GABAPENTIN. [Concomitant]
     Active Substance: GABAPENTIN
  7. METOPROLOL SUCCINATE. [Concomitant]
     Active Substance: METOPROLOL SUCCINATE
  8. MORPHINE SULFATE. [Concomitant]
     Active Substance: MORPHINE SULFATE
  9. MS CONTIN [Concomitant]
     Active Substance: MORPHINE SULFATE
  10. PROCTOZONE-H [Concomitant]
  11. PROAIR HFA [Concomitant]
     Active Substance: ALBUTEROL SULFATE
  12. ACETAMINOPHEN AND CODEINE [Concomitant]
     Active Substance: ACETAMINOPHEN\CODEINE PHOSPHATE
  13. STIVARGA [Suspect]
     Active Substance: REGORAFENIB
     Indication: NEUROENDOCRINE CARCINOMA
     Dosage: DAILY DOSE 160 MG
     Route: 048
     Dates: start: 20171216
  14. ZOFRAN [Concomitant]
     Active Substance: ONDANSETRON HYDROCHLORIDE
  15. ATORVASTATIN CALCIUM. [Concomitant]
     Active Substance: ATORVASTATIN CALCIUM

REACTIONS (4)
  - Off label use [None]
  - Hospitalisation [None]
  - Product use in unapproved indication [None]
  - Death [Fatal]

NARRATIVE: CASE EVENT DATE: 20171224
